FAERS Safety Report 5708984-6 (Version None)
Quarter: 2008Q2

REPORT INFORMATION
  Report Type: 
  Country: None (occurrence: None)
  Receive Date: 20080414
  Receipt Date: 20080414
  Transmission Date: 20081010
  Serious: Yes (Other)
  Sender: FDA-Public Use
  Company Number: None

PATIENT
  Sex: Female
  Weight: 75.2971 kg

DRUGS (2)
  1. BONIVA [Suspect]
     Indication: OSTEOPOROSIS
     Dosage: MONTHLY PO
     Route: 048
     Dates: start: 20080108, end: 20080108
  2. BONIVA [Suspect]
     Indication: OSTEOPOROSIS
     Dosage: MONTHLY PO
     Route: 048
     Dates: start: 20080208, end: 20080208

REACTIONS (6)
  - ARTHRALGIA [None]
  - ARTHROPATHY [None]
  - JOINT SWELLING [None]
  - MUSCULOSKELETAL PAIN [None]
  - OEDEMA PERIPHERAL [None]
  - PAIN IN EXTREMITY [None]
